FAERS Safety Report 4706515-0 (Version None)
Quarter: 2005Q2

REPORT INFORMATION
  Report Type: 
  Country: None (occurrence: None)
  Receive Date: 20050114
  Receipt Date: 20050114
  Transmission Date: 20051028
  Serious: Yes (Other)
  Sender: FDA-Public Use
  Company Number: None

PATIENT
  Sex: Female
  Weight: 108.8633 kg

DRUGS (1)
  1. COUMADIN [Suspect]
     Indication: EMBOLISM
     Dosage: 10 MG 5 DAYS PER WK  ; 15 MG 2 DAYS PER WK
     Dates: start: 20040701

REACTIONS (1)
  - INTERNATIONAL NORMALISED RATIO FLUCTUATION [None]
